FAERS Safety Report 19178406 (Version 4)
Quarter: 2021Q2

REPORT INFORMATION
  Report Type: Report from Study
  Country: US (occurrence: US)
  Receive Date: 20210426
  Receipt Date: 20210526
  Transmission Date: 20210717
  Serious: Yes (Other)
  Sender: FDA-Public Use
  Company Number: US-AGIOS-2104US02692

PATIENT

DRUGS (2)
  1. CLARITIN [Concomitant]
     Active Substance: LORATADINE
  2. TIBSOVO [Suspect]
     Active Substance: IVOSIDENIB
     Indication: ACUTE LYMPHOCYTIC LEUKAEMIA
     Dosage: 250 MILLIGRAM, 2 TABLETS (500 MG), QD
     Route: 048
     Dates: start: 20210412

REACTIONS (13)
  - Decreased appetite [Unknown]
  - Peripheral swelling [Unknown]
  - Waist circumference increased [Unknown]
  - Contusion [Unknown]
  - Swelling [Unknown]
  - Gait disturbance [Unknown]
  - Platelet transfusion [Unknown]
  - Dizziness [Unknown]
  - Transfusion [Unknown]
  - Headache [Unknown]
  - Nausea [Unknown]
  - Off label use [Unknown]
  - Mood altered [Unknown]

NARRATIVE: CASE EVENT DATE: 20210414
